FAERS Safety Report 7118539-7 (Version None)
Quarter: 2010Q4

REPORT INFORMATION
  Report Type: 
  Country: None (occurrence: None)
  Receive Date: 20101123
  Receipt Date: 20101117
  Transmission Date: 20110411
  Serious: Yes (Death, Hospitalization, Disabling, Other)
  Sender: FDA-Public Use
  Company Number: US-CELGENEUS-163-21880-10090894

PATIENT
  Sex: Female

DRUGS (3)
  1. REVLIMID [Suspect]
     Route: 048
     Dates: start: 20100720, end: 20100812
  2. REVLIMID [Suspect]
     Route: 048
     Dates: start: 20100812, end: 20100825
  3. VELCADE [Concomitant]
     Indication: MULTIPLE MYELOMA
     Route: 051
     Dates: start: 20100111, end: 20100520

REACTIONS (3)
  - DEATH [None]
  - HAEMORRHAGE [None]
  - PANCYTOPENIA [None]
